FAERS Safety Report 9723700 (Version 2)
Quarter: 2013Q4

REPORT INFORMATION
  Report Type: Spontaneous
  Country: DE (occurrence: DE)
  Receive Date: 20131202
  Receipt Date: 20131231
  Transmission Date: 20140711
  Serious: Yes (Other)
  Sender: FDA-Public Use
  Company Number: DE-GLAXOSMITHKLINE-B0949769A

PATIENT
  Age: 56 Year
  Sex: Male

DRUGS (1)
  1. SUMATRIPTAN [Suspect]
     Indication: MIGRAINE
     Dosage: 100MG PER DAY
     Route: 048
     Dates: start: 20130101, end: 20131216

REACTIONS (2)
  - Drug dependence [Unknown]
  - Drug abuse [Unknown]
